FAERS Safety Report 9660084 (Version 2)
Quarter: 2013Q4

REPORT INFORMATION
  Report Type: Report from Study
  Country: US (occurrence: US)
  Receive Date: 20131031
  Receipt Date: 20131211
  Transmission Date: 20140711
  Serious: Yes (Other)
  Sender: FDA-Public Use
  Company Number: US-JNJFOC-20131019004

PATIENT
  Sex: Male
  Weight: 96.16 kg

DRUGS (3)
  1. SIMPONI [Suspect]
     Indication: PSORIATIC ARTHROPATHY
     Route: 058
  2. TRAMADOL [Concomitant]
     Indication: PAIN
     Route: 048
     Dates: start: 2011
  3. TURMERIC [Concomitant]
     Indication: ARTHRITIS
     Route: 065

REACTIONS (3)
  - Diverticulitis [Recovered/Resolved]
  - Cellulitis [Recovered/Resolved]
  - Drug ineffective [Unknown]
